FAERS Safety Report 7286565-3 (Version None)
Quarter: 2011Q1

REPORT INFORMATION
  Report Type: 
  Country: None (occurrence: None)
  Receive Date: 20110210
  Receipt Date: 20110207
  Transmission Date: 20110831
  Serious: Yes (Other)
  Sender: FDA-Public Use
  Company Number: US-ABBOTT-11P-163-0702045-00

PATIENT
  Sex: Female
  Weight: 165 kg

DRUGS (9)
  1. HUMIRA [Suspect]
     Dates: start: 20110203
  2. HUMIRA [Suspect]
     Indication: PSORIASIS
     Dates: start: 20100101, end: 20100301
  3. ALLEGRA [Concomitant]
     Indication: PRODUCT USED FOR UNKNOWN INDICATION
  4. LYRICA [Concomitant]
     Indication: PRODUCT USED FOR UNKNOWN INDICATION
  5. PREVACID [Concomitant]
     Indication: PRODUCT USED FOR UNKNOWN INDICATION
  6. TUMERIC [Concomitant]
     Indication: PHYTOTHERAPY
  7. CYMBALTA [Concomitant]
     Indication: PRODUCT USED FOR UNKNOWN INDICATION
  8. LISINOPRIL [Concomitant]
     Indication: PRODUCT USED FOR UNKNOWN INDICATION
  9. METFORMIN [Concomitant]
     Indication: PRODUCT USED FOR UNKNOWN INDICATION

REACTIONS (4)
  - VISUAL FIELD DEFECT [None]
  - EYELID PTOSIS [None]
  - PYREXIA [None]
  - CELLULITIS [None]
